FAERS Safety Report 24901581 (Version 1)
Quarter: 2025Q1

REPORT INFORMATION
  Report Type: Spontaneous
  Country: US (occurrence: US)
  Receive Date: 20250129
  Receipt Date: 20250129
  Transmission Date: 20250409
  Serious: No
  Sender: SANOFI AVENTIS
  Company Number: US-SA-2025SA025417

PATIENT
  Age: 6 Year
  Sex: Male

DRUGS (2)
  1. ALPROLIX [Suspect]
     Active Substance: EFTRENONACOG ALFA
     Indication: Factor XI deficiency
     Dosage: 2350 IU, FREQUENCY: EVERY 96 HOURS FOR PROPHYLAXIS AND ONCE DAILY AS NEEDED FOR MAJOR BLEEDING EPISO
     Route: 042
     Dates: start: 202406
  2. ALPROLIX [Suspect]
     Active Substance: EFTRENONACOG ALFA
     Indication: Factor XI deficiency
     Dosage: 2350 IU, FREQUENCY: EVERY 96 HOURS FOR PROPHYLAXIS AND ONCE DAILY AS NEEDED FOR MAJOR BLEEDING EPISO
     Route: 042
     Dates: start: 202406

REACTIONS (1)
  - Viral infection [Unknown]

NARRATIVE: CASE EVENT DATE: 20241201
